FAERS Safety Report 8058778-4 (Version None)
Quarter: 2012Q1

REPORT INFORMATION
  Report Type: 
  Country: None (occurrence: None)
  Receive Date: 20120120
  Receipt Date: 20120118
  Transmission Date: 20120608
  Serious: No
  Sender: FDA-Public Use
  Company Number: US-BAYER-2012-006061

PATIENT
  Sex: Female

DRUGS (1)
  1. MIRENA [Suspect]
     Indication: CONTRACEPTION
     Dosage: UNK
     Route: 015
     Dates: start: 20120117

REACTIONS (4)
  - DISCOMFORT [None]
  - MEDICAL DEVICE COMPLICATION [None]
  - ABDOMINAL PAIN [None]
  - SWELLING [None]
